FAERS Safety Report 16272263 (Version 2)
Quarter: 2019Q4

REPORT INFORMATION
  Report Type: Report from Study
  Country: US (occurrence: US)
  Receive Date: 20190503
  Receipt Date: 20191029
  Transmission Date: 20200122
  Serious: Yes (Hospitalization)
  Sender: FDA-Public Use
  Company Number: US-ACTELION-A-NJ2019-187272

PATIENT
  Sex: Female
  Weight: 51.25 kg

DRUGS (1)
  1. TRACLEER [Suspect]
     Active Substance: BOSENTAN
     Indication: PULMONARY HYPERTENSION
     Dosage: 62.5 MG, BID
     Route: 048

REACTIONS (4)
  - Asthenia [Unknown]
  - Dyspnoea [Unknown]
  - Hospitalisation [Unknown]
  - Pancreatic disorder [Unknown]
